FAERS Safety Report 5419545-0 (Version None)
Quarter: 2007Q3

REPORT INFORMATION
  Report Type: 
  Country: None (occurrence: None)
  Receive Date: 20070820
  Receipt Date: 20070806
  Transmission Date: 20080115
  Serious: Yes (Life-Threatening, Hospitalization, Disabling)
  Sender: FDA-Public Use
  Company Number: FR-ROCHE-510625

PATIENT
  Age: 79 Year
  Sex: Male

DRUGS (3)
  1. ROCEPHIN [Suspect]
     Indication: DRUG USE FOR UNKNOWN INDICATION
     Route: 065
     Dates: end: 20070310
  2. LOVENOX [Suspect]
     Indication: DRUG USE FOR UNKNOWN INDICATION
     Route: 065
     Dates: start: 20070221
  3. LOVENOX [Suspect]
     Route: 065
     Dates: end: 20070101

REACTIONS (2)
  - CEREBROVASCULAR ACCIDENT [None]
  - SUBDURAL HAEMATOMA [None]
